FAERS Safety Report 16543892 (Version 1)
Quarter: 2019Q3

REPORT INFORMATION
  Report Type: Spontaneous
  Country: GB (occurrence: GB)
  Receive Date: 20190709
  Receipt Date: 20190709
  Transmission Date: 20191004
  Serious: Yes (Other)
  Sender: FDA-Public Use
  Company Number: GB-PFIZER INC-2019284469

PATIENT
  Age: 23 Year
  Sex: Female
  Weight: 70 kg

DRUGS (1)
  1. DEPO-PROVERA [Suspect]
     Active Substance: MEDROXYPROGESTERONE ACETATE
     Indication: CONTRACEPTION
     Dosage: UNK, (150MG/1ML)
     Route: 030
     Dates: start: 20190424, end: 20190524

REACTIONS (7)
  - Hypersensitivity [Recovering/Resolving]
  - Lip swelling [Unknown]
  - Throat tightness [Recovering/Resolving]
  - Urticaria [Unknown]
  - Malaise [Unknown]
  - Dyspnoea [Recovering/Resolving]
  - Pruritus [Recovering/Resolving]

NARRATIVE: CASE EVENT DATE: 20190524
